FAERS Safety Report 7509697-0 (Version None)
Quarter: 2011Q2

REPORT INFORMATION
  Report Type: 
  Country: None (occurrence: None)
  Receive Date: 20110527
  Receipt Date: 20110523
  Transmission Date: 20111010
  Serious: Yes (Hospitalization)
  Sender: FDA-Public Use
  Company Number: FR-MERCK-1105USA03645

PATIENT
  Age: 74 Year
  Sex: Female

DRUGS (14)
  1. SINEMET [Suspect]
     Route: 048
     Dates: start: 20051201, end: 20070201
  2. REQUIP [Suspect]
     Route: 048
     Dates: start: 20060901, end: 20080601
  3. SINEMET [Suspect]
     Dosage: 1 OR HALF TABLET DAILY
     Route: 048
     Dates: start: 20091101
  4. CITALOPRAM [Concomitant]
     Route: 065
     Dates: start: 20100101
  5. REQUIP [Suspect]
     Route: 048
     Dates: start: 20090901
  6. SINEMET CR [Suspect]
     Route: 048
     Dates: start: 20091101
  7. APOMORPHINE HYDROCHLORIDE [Suspect]
     Route: 048
     Dates: start: 20100724, end: 20110301
  8. CLOZAPINE [Concomitant]
     Route: 065
     Dates: start: 20100101, end: 20110211
  9. REQUIP [Suspect]
     Route: 048
     Dates: start: 20050101, end: 20051201
  10. AZILECT [Suspect]
     Route: 048
     Dates: start: 20100201, end: 20110310
  11. REQUIP [Suspect]
     Route: 048
     Dates: start: 20080601, end: 20090901
  12. SINEMET [Suspect]
     Route: 048
     Dates: start: 20090401, end: 20091101
  13. REQUIP [Suspect]
     Route: 048
     Dates: start: 20051201, end: 20060901
  14. SINEMET CR [Suspect]
     Route: 048
     Dates: start: 20090901, end: 20091101

REACTIONS (3)
  - PSYCHOTIC DISORDER [None]
  - DELIRIUM [None]
  - HALLUCINATION [None]
